FAERS Safety Report 6185696-9 (Version None)
Quarter: 2009Q2

REPORT INFORMATION
  Report Type: 
  Country: None (occurrence: None)
  Receive Date: 20090511
  Receipt Date: 20090430
  Transmission Date: 20091009
  Serious: Yes (Hospitalization)
  Sender: FDA-Public Use
  Company Number: JP-WYE-H08808909

PATIENT
  Sex: Male
  Weight: 44 kg

DRUGS (6)
  1. ZOSYN [Suspect]
     Route: 041
     Dates: start: 20090116, end: 20090220
  2. CADEXOMER IODINE [Concomitant]
     Indication: DECUBITUS ULCER
     Dosage: UNKNOWN
     Dates: start: 20081201
  3. GASMOTIN [Concomitant]
     Dosage: 15 MG PER DAY
     Route: 048
     Dates: start: 20090113
  4. IODOFORM [Concomitant]
     Indication: DECUBITUS ULCER
     Dosage: UNKNOWN
     Dates: start: 20080202
  5. VANCOMYCIN HCL [Concomitant]
     Indication: SEPSIS
     Dosage: UNKNOWN
     Route: 041
     Dates: start: 20090107, end: 20090123
  6. SLOW-K [Concomitant]
     Indication: HYPOKALAEMIA
     Dosage: 3600 MG PER DAY
     Route: 048
     Dates: start: 20081215, end: 20090331

REACTIONS (1)
  - DELIRIUM [None]
